FAERS Safety Report 25840404 (Version 1)
Quarter: 2025Q3

REPORT INFORMATION
  Report Type: Other
  Country: CN (occurrence: CN)
  Receive Date: 20250924
  Receipt Date: 20250924
  Transmission Date: 20251020
  Serious: Yes (Other)
  Sender: ANI
  Company Number: CN-ANIPHARMA-030645

PATIENT
  Age: 46 Year
  Sex: Male

DRUGS (1)
  1. CLARITHROMYCIN [Suspect]
     Active Substance: CLARITHROMYCIN
     Indication: Mycobacterial infection

REACTIONS (3)
  - Diabetes mellitus [Unknown]
  - Anti IFN gamma autoantibody syndrome [Unknown]
  - Infection reactivation [Unknown]
